FAERS Safety Report 23586895 (Version 1)
Quarter: 2024Q1

REPORT INFORMATION
  Report Type: Spontaneous
  Country: RU (occurrence: RU)
  Receive Date: 20240301
  Receipt Date: 20240301
  Transmission Date: 20240410
  Serious: Yes (Life-Threatening, Hospitalization)
  Sender: FDA-Public Use
  Company Number: RU-SANDOZ-SDZ2024RU021550

PATIENT
  Sex: Female
  Weight: 80 kg

DRUGS (3)
  1. AMITRIPTYLINE [Suspect]
     Active Substance: AMITRIPTYLINE
     Indication: Suicide attempt
     Dosage: UNK, PER OS
     Route: 048
     Dates: start: 20240223, end: 20240223
  2. VALSARTAN [Suspect]
     Active Substance: VALSARTAN
     Indication: Suicide attempt
     Dosage: UNK, PER OS
     Route: 048
     Dates: start: 20240223, end: 20240223
  3. KETOPROFEN [Suspect]
     Active Substance: KETOPROFEN
     Indication: Suicide attempt
     Dosage: UNK
     Route: 048
     Dates: start: 20240223, end: 20240223

REACTIONS (3)
  - Toxicity to various agents [Recovering/Resolving]
  - Multiple organ dysfunction syndrome [Recovering/Resolving]
  - Suicide attempt [Recovering/Resolving]

NARRATIVE: CASE EVENT DATE: 20240223
